FAERS Safety Report 6207278-2 (Version None)
Quarter: 2009Q2

REPORT INFORMATION
  Report Type: 
  Country: None (occurrence: None)
  Receive Date: 20090528
  Receipt Date: 20090526
  Transmission Date: 20091009
  Serious: Yes (Hospitalization, Other)
  Sender: FDA-Public Use
  Company Number: US-ROXANE LABORATORIES, INC.-2009-RO-00519RO

PATIENT
  Age: 87 Year
  Sex: Male

DRUGS (15)
  1. FLECAINIDE ACETATE [Suspect]
     Indication: ATRIAL FIBRILLATION
     Dosage: 100MG
     Dates: start: 20051201
  2. FLECAINIDE ACETATE [Suspect]
     Dosage: 200MG
  3. FLECAINIDE ACETATE [Suspect]
     Dosage: 300MG
     Dates: start: 20071001
  4. FLECAINIDE ACETATE [Suspect]
     Dosage: 250MG
  5. FLECAINIDE ACETATE [Suspect]
     Dosage: 50MG
  6. DIGOXIN [Suspect]
  7. COUMADIN [Suspect]
     Indication: ATRIAL FIBRILLATION
     Dates: start: 20051201
  8. COUMADIN [Suspect]
     Dosage: 2MG
  9. METOPROLOL SUCCINATE [Suspect]
     Indication: ATRIAL FIBRILLATION
     Dates: start: 20051201
  10. METOPROLOL SUCCINATE [Suspect]
     Dosage: 150MG
  11. METOPROLOL SUCCINATE [Suspect]
     Dosage: 100MG
  12. HYDROCHLOROTHIAZIDE [Suspect]
  13. OLMESARTAN/HYDROCHLOROTHIAZIDE [Suspect]
  14. POTASSIUM CHLORIDE [Suspect]
     Dosage: 10MEQ
  15. TORSEMIDE [Suspect]
     Dosage: 10MG

REACTIONS (10)
  - ASTHENIA [None]
  - CARDIAC FAILURE [None]
  - DRUG TOXICITY [None]
  - EXERCISE TOLERANCE DECREASED [None]
  - GAIT DISTURBANCE [None]
  - MENTAL DISORDER [None]
  - POLLAKIURIA [None]
  - SICK SINUS SYNDROME [None]
  - SYNCOPE [None]
  - VISION BLURRED [None]
